FAERS Safety Report 6241025-3 (Version None)
Quarter: 2009Q2

REPORT INFORMATION
  Report Type: 
  Country: None (occurrence: None)
  Receive Date: 20090623
  Receipt Date: 20090616
  Transmission Date: 20091009
  Serious: Yes (Hospitalization, Other)
  Sender: FDA-Public Use
  Company Number: FR-JNJFOC-20090503622

PATIENT
  Sex: Female
  Weight: 58 kg

DRUGS (3)
  1. REMICADE [Suspect]
     Indication: CROHN'S DISEASE
     Dosage: NO DRUG GIVEN
     Route: 042
  2. MESALAZINE [Concomitant]
  3. AZATHIOPRINE [Concomitant]

REACTIONS (1)
  - BREAST MASS [None]
